FAERS Safety Report 7055011-7 (Version None)
Quarter: 2010Q4

REPORT INFORMATION
  Report Type: 
  Country: None (occurrence: None)
  Receive Date: 20101021
  Receipt Date: 20100323
  Transmission Date: 20110411
  Serious: No
  Sender: FDA-Public Use
  Company Number: US-BAYER-201018307NA

PATIENT
  Sex: Female

DRUGS (1)
  1. MIRENA [Suspect]
     Indication: INTRA-UTERINE CONTRACEPTIVE DEVICE
     Route: 015
     Dates: start: 20090601

REACTIONS (1)
  - DEVICE EXPULSION [None]
